FAERS Safety Report 22362333 (Version 1)
Quarter: 2023Q2

REPORT INFORMATION
  Report Type: Spontaneous
  Country: NO (occurrence: NO)
  Receive Date: 20230524
  Receipt Date: 20230524
  Transmission Date: 20230721
  Serious: Yes (Other)
  Sender: FDA-Public Use
  Company Number: NO-ROCHE-3346927

PATIENT
  Sex: Male

DRUGS (19)
  1. DOXORUBICIN HYDROCHLORIDE [Suspect]
     Active Substance: DOXORUBICIN HYDROCHLORIDE
     Indication: Diffuse large B-cell lymphoma
     Dosage: 1ST SYSTEMIC TREATMENT
     Route: 065
     Dates: start: 20101006, end: 20110112
  2. DOXORUBICIN HYDROCHLORIDE [Suspect]
     Active Substance: DOXORUBICIN HYDROCHLORIDE
     Dosage: 4TH SYSTEMIC TREATMENT
     Route: 065
     Dates: start: 20160118, end: 20160302
  3. VINCRISTINE SULFATE [Suspect]
     Active Substance: VINCRISTINE SULFATE
     Indication: Diffuse large B-cell lymphoma
     Dosage: 1ST SYSTEMIC TREATMENT
     Route: 065
     Dates: start: 20101006, end: 20110112
  4. VINCRISTINE SULFATE [Suspect]
     Active Substance: VINCRISTINE SULFATE
     Dosage: 4TH SYSTEMIC TREATMENT
     Route: 065
     Dates: start: 20160118, end: 20160302
  5. METHOTREXATE [Suspect]
     Active Substance: METHOTREXATE
     Indication: Diffuse large B-cell lymphoma
     Dosage: 3RD SYSTEMIC TREATMENT
     Route: 065
     Dates: start: 20130629, end: 20131122
  6. CYTARABINE [Suspect]
     Active Substance: CYTARABINE
     Indication: Diffuse large B-cell lymphoma
     Dosage: 2ND SYSTEMIC TREATMENT
     Route: 065
     Dates: start: 20120419, end: 20120620
  7. RITUXIMAB [Suspect]
     Active Substance: RITUXIMAB
     Indication: Diffuse large B-cell lymphoma
     Dosage: 1ST SYSTEMIC TREATMENT
     Route: 065
     Dates: start: 20101006, end: 20110112
  8. RITUXIMAB [Suspect]
     Active Substance: RITUXIMAB
     Dosage: 2ND SYSTEMIC TREATMENT
     Route: 065
     Dates: start: 20120419, end: 20120620
  9. RITUXIMAB [Suspect]
     Active Substance: RITUXIMAB
     Dosage: 3RD SYSTEMIC TREATMENT
     Route: 065
     Dates: start: 20130629, end: 20131122
  10. RITUXIMAB [Suspect]
     Active Substance: RITUXIMAB
     Dosage: 4TH SYSTEMIC TREATMENT
     Route: 065
     Dates: start: 20160118, end: 20160302
  11. IFOSFAMIDE [Suspect]
     Active Substance: IFOSFAMIDE
     Indication: Diffuse large B-cell lymphoma
     Dosage: 3RD SYSTEMIC TREATMENT
     Route: 065
     Dates: start: 20130629, end: 20131122
  12. ETOPOSIDE [Suspect]
     Active Substance: ETOPOSIDE
     Indication: Diffuse large B-cell lymphoma
     Dosage: 2ND SYSTEMIC TREATMENT
     Route: 065
     Dates: start: 20120419, end: 20120620
  13. ETOPOSIDE [Suspect]
     Active Substance: ETOPOSIDE
     Dosage: 3RD SYSTEMIC TREATMENT
     Route: 065
     Dates: start: 20130629, end: 20131122
  14. POLATUZUMAB VEDOTIN [Suspect]
     Active Substance: POLATUZUMAB VEDOTIN
     Indication: Diffuse large B-cell lymphoma
     Dosage: 5TH LINE SYSTEMIC TREATMENT
     Route: 065
     Dates: start: 20230202, end: 20230503
  15. CYCLOPHOSPHAMIDE [Suspect]
     Active Substance: CYCLOPHOSPHAMIDE
     Indication: Diffuse large B-cell lymphoma
     Dosage: 1ST SYSTEMIC TREATMENT
     Route: 065
     Dates: start: 20101006, end: 20110112
  16. CYCLOPHOSPHAMIDE [Suspect]
     Active Substance: CYCLOPHOSPHAMIDE
     Dosage: 4TH SYSTEMIC TREATMENT
     Route: 065
     Dates: start: 20160118, end: 20160302
  17. PREDNISONE [Suspect]
     Active Substance: PREDNISONE
     Indication: Diffuse large B-cell lymphoma
     Dosage: 1ST SYSTEMIC TREATMENT
     Route: 065
     Dates: start: 20101006, end: 20110112
  18. PREDNISONE [Suspect]
     Active Substance: PREDNISONE
     Dosage: 4TH SYSTEMIC TREATMENT
     Route: 065
     Dates: start: 20160118, end: 20160302
  19. BLEOMYCIN [Suspect]
     Active Substance: BLEOMYCIN SULFATE
     Indication: Diffuse large B-cell lymphoma
     Dosage: 2ND SYSTEMIC TREATMENT
     Route: 065
     Dates: start: 20120419, end: 20120620

REACTIONS (3)
  - Blood lactate dehydrogenase increased [Unknown]
  - Neoplasm progression [Unknown]
  - Off label use [Unknown]
